FAERS Safety Report 11889641 (Version 1)
Quarter: 2016Q1

REPORT INFORMATION
  Report Type: Spontaneous
  Country: US (occurrence: US)
  Receive Date: 20160105
  Receipt Date: 20160105
  Transmission Date: 20160526
  Serious: No
  Sender: FDA-Public Use
  Company Number: US-ASTRAZENECA-2015SF30700

PATIENT
  Age: 56 Year
  Sex: Female
  Weight: 72.6 kg

DRUGS (4)
  1. PROTONIX [Concomitant]
     Active Substance: PANTOPRAZOLE SODIUM
  2. NEXIUM [Suspect]
     Active Substance: ESOMEPRAZOLE MAGNESIUM
     Route: 048
  3. PRILOSEC OTC [Suspect]
     Active Substance: OMEPRAZOLE MAGNESIUM
     Route: 048
  4. PRILOSEC [Suspect]
     Active Substance: OMEPRAZOLE MAGNESIUM
     Dosage: 20 MG, TWO TIMES A DAY GENERIC
     Route: 048

REACTIONS (9)
  - Malaise [Unknown]
  - Diabetes mellitus [Unknown]
  - Gastritis [Unknown]
  - Blood glucose decreased [Unknown]
  - Ulcer [Unknown]
  - Thyroid disorder [Unknown]
  - Hypophagia [Unknown]
  - Asthma [Unknown]
  - Intentional product misuse [Unknown]

NARRATIVE: CASE EVENT DATE: 2010
